FAERS Safety Report 18661955 (Version 1)
Quarter: 2020Q4

REPORT INFORMATION
  Report Type: Spontaneous
  Country: FR (occurrence: DZ)
  Receive Date: 20201224
  Receipt Date: 20201224
  Transmission Date: 20210114
  Serious: Yes (Hospitalization, Other)
  Sender: FDA-Public Use
  Company Number: FR-JAZZ-2020-DZ-017445

PATIENT
  Age: 5 Year
  Sex: Male

DRUGS (1)
  1. ASPARAGINASE [Suspect]
     Active Substance: ASPARAGINASE
     Indication: LEUKAEMIA
     Dosage: UNK
     Route: 065
     Dates: start: 202002

REACTIONS (3)
  - Pallor [Unknown]
  - Pyrexia [Unknown]
  - Dyspnoea [Unknown]
